FAERS Safety Report 9469609 (Version 1)
Quarter: 2013Q3

REPORT INFORMATION
  Report Type: Spontaneous
  Country: US (occurrence: US)
  Receive Date: 20130822
  Receipt Date: 20130822
  Transmission Date: 20140515
  Serious: Yes (Hospitalization)
  Sender: FDA-Public Use
  Company Number: US-BRISTOL-MYERS SQUIBB COMPANY-19191360

PATIENT
  Age: 44 Year
  Sex: Male

DRUGS (4)
  1. BYDUREON [Suspect]
     Indication: TYPE 2 DIABETES MELLITUS
     Dates: start: 20130730, end: 20130813
  2. GLYBURIDE + METFORMIN HCL [Concomitant]
     Dosage: 1DF:5/500MG
     Route: 048
  3. LEVEMIR [Concomitant]
  4. INSULIN [Concomitant]
     Dosage: 1DF:20 UNITS
     Route: 058

REACTIONS (1)
  - Pancreatitis [Unknown]
